FAERS Safety Report 6171542-6 (Version None)
Quarter: 2009Q2

REPORT INFORMATION
  Report Type: 
  Country: None (occurrence: None)
  Receive Date: 20090428
  Receipt Date: 20090428
  Transmission Date: 20091009
  Serious: Yes (Hospitalization)
  Sender: FDA-Public Use
  Company Number: None

PATIENT
  Age: 51 Year
  Sex: Female
  Weight: 82.6 kg

DRUGS (8)
  1. RITUXAN [Suspect]
     Indication: LYMPHOMA
     Dosage: 715 MG 4/16 IV
     Dates: start: 20090416
  2. BENADRYL [Concomitant]
  3. TYLENOL [Concomitant]
  4. ALLOPURINOL [Concomitant]
  5. NTG SL [Concomitant]
  6. MUCINEX [Concomitant]
  7. ATENOLOL [Concomitant]
  8. LEVSIN SL [Concomitant]

REACTIONS (4)
  - ABDOMINAL PAIN [None]
  - CHEST DISCOMFORT [None]
  - DYSPNOEA [None]
  - HYPOTENSION [None]
